FAERS Safety Report 7703609-2 (Version None)
Quarter: 2011Q3

REPORT INFORMATION
  Report Type: 
  Country: None (occurrence: None)
  Receive Date: 20110823
  Receipt Date: 20110822
  Transmission Date: 20111222
  Serious: Yes (Death, Other)
  Sender: FDA-Public Use
  Company Number: PHHY2010GB07918

PATIENT
  Sex: Female

DRUGS (2)
  1. MORPHINE [Suspect]
  2. CLOZAPINE [Suspect]
     Indication: SCHIZOPHRENIA
     Route: 048
     Dates: start: 19970909

REACTIONS (3)
  - INFUSION SITE INFECTION [None]
  - DEATH [None]
  - BREAST CANCER [None]
